FAERS Safety Report 21004110 (Version 3)
Quarter: 2022Q4

REPORT INFORMATION
  Report Type: Spontaneous
  Country: US (occurrence: US)
  Receive Date: 20220624
  Receipt Date: 20221216
  Transmission Date: 20230112
  Serious: No
  Sender: FDA-Public Use
  Company Number: US-AVEO ONCOLOGY-2022-AVEO-US000207

PATIENT

DRUGS (6)
  1. FOTIVDA [Suspect]
     Active Substance: TIVOZANIB HYDROCHLORIDE
     Indication: Renal cell carcinoma
     Dosage: 1.34 MG, DAILY FOR 21 DAYS WITH 7 DAYS OFF (28-DAY CYCLE)
     Route: 048
     Dates: start: 20220504, end: 2022
  2. FOTIVDA [Suspect]
     Active Substance: TIVOZANIB HYDROCHLORIDE
     Dosage: 1.34 MG, DAILY FOR 21 DAYS WITH 7 DAYS OFF (28-DAY CYCLE)
     Route: 048
     Dates: start: 2022, end: 202211
  3. TRAMADOL [Concomitant]
     Active Substance: TRAMADOL
  4. LEVOTHYROXINE SODIUM [Concomitant]
     Active Substance: LEVOTHYROXINE SODIUM
  5. SUDAFED [Concomitant]
     Active Substance: PSEUDOEPHEDRINE HYDROCHLORIDE
  6. FLONASE [Concomitant]
     Active Substance: FLUTICASONE PROPIONATE

REACTIONS (25)
  - Fatigue [Unknown]
  - Dysphonia [Unknown]
  - Diarrhoea [Recovered/Resolved]
  - Decreased appetite [Unknown]
  - Stomatitis [Unknown]
  - Thyroid disorder [Unknown]
  - Blood pressure fluctuation [Not Recovered/Not Resolved]
  - Throat irritation [Unknown]
  - Ear discomfort [Unknown]
  - Seasonal allergy [Unknown]
  - Arthritis [Recovered/Resolved]
  - Respiratory tract congestion [Unknown]
  - Throat tightness [Unknown]
  - Heart rate increased [Unknown]
  - Vomiting [Recovered/Resolved]
  - Malignant neoplasm progression [Unknown]
  - Gastrooesophageal reflux disease [Not Recovered/Not Resolved]
  - Vocal cord disorder [Unknown]
  - Eructation [Unknown]
  - Insomnia [Not Recovered/Not Resolved]
  - Throat clearing [Unknown]
  - Cough [Unknown]
  - Memory impairment [Unknown]
  - Laboratory test abnormal [Unknown]
  - Disease progression [Unknown]
